FAERS Safety Report 5152222-2 (Version None)
Quarter: 2006Q4

REPORT INFORMATION
  Report Type: 
  Country: None (occurrence: None)
  Receive Date: 20061109
  Receipt Date: 20061024
  Transmission Date: 20070319
  Serious: Yes (Death)
  Sender: FDA-Public Use
  Company Number: PAR_0901_2006

PATIENT
  Age: 33 Year

DRUGS (2)
  1. IBUPROFEN [Suspect]
     Dosage: DF PO
     Route: 048
  2. ACETAMINOPHEN AND HYDROCODONE BITARTRATE [Suspect]
     Dosage: DF PO
     Route: 048

REACTIONS (1)
  - COMPLETED SUICIDE [None]
